FAERS Safety Report 4417378-5 (Version None)
Quarter: 2004Q3

REPORT INFORMATION
  Report Type: 
  Country: None (occurrence: None)
  Receive Date: 20040702
  Receipt Date: 20040503
  Transmission Date: 20050211
  Serious: Yes (Other)
  Sender: FDA-Public Use
  Company Number: 2004029568

PATIENT
  Age: 35 Year
  Sex: Female

DRUGS (2)
  1. ACCUPRIL [Suspect]
     Indication: ILL-DEFINED DISORDER
     Dosage: UNKNOWN
     Route: 065
     Dates: end: 20040101
  2. EFAVIRENZ (EFAVIRENZ) [Suspect]
     Indication: HIV INFECTION
     Dosage: 600 MG (600 MG, DAILY), ORAL
     Route: 048

REACTIONS (2)
  - ANGIONEUROTIC OEDEMA [None]
  - LIP BLISTER [None]
